FAERS Safety Report 6447544-9 (Version None)
Quarter: 2009Q4

REPORT INFORMATION
  Report Type: 
  Country: None (occurrence: None)
  Receive Date: 20091119
  Receipt Date: 20091113
  Transmission Date: 20100525
  Serious: Yes (Other)
  Sender: FDA-Public Use
  Company Number: JP-MERCK-0911USA02725

PATIENT
  Age: 51 Year
  Sex: Male

DRUGS (2)
  1. PROPECIA [Suspect]
     Route: 048
     Dates: start: 20090818, end: 20091112
  2. MINOXIDIL [Concomitant]
     Route: 061
     Dates: start: 20090818, end: 20091112

REACTIONS (2)
  - ALOPECIA [None]
  - HAIR COLOUR CHANGES [None]
